FAERS Safety Report 5287156-6 (Version None)
Quarter: 2007Q2

REPORT INFORMATION
  Report Type: 
  Country: None (occurrence: None)
  Receive Date: 20070404
  Receipt Date: 20070326
  Transmission Date: 20071010
  Serious: Yes (Hospitalization, Other)
  Sender: FDA-Public Use
  Company Number: AU-PFIZER INC-2007014476

PATIENT
  Sex: Female

DRUGS (6)
  1. SILDENAFIL (PAH) [Suspect]
     Indication: PULMONARY HYPERTENSION
     Route: 048
  2. IRBESARTAN [Concomitant]
  3. BUMETANIDE [Concomitant]
  4. CALTRATE + D [Concomitant]
  5. MAGNESIUM [Concomitant]
  6. SYMBICORT [Concomitant]

REACTIONS (8)
  - BLOOD ALBUMIN DECREASED [None]
  - EAR PAIN [None]
  - OEDEMA PERIPHERAL [None]
  - ORTHOSTATIC HYPOTENSION [None]
  - PITTING OEDEMA [None]
  - PNEUMOCOCCAL BACTERAEMIA [None]
  - PYREXIA [None]
  - VOMITING [None]
